FAERS Safety Report 24430159 (Version 1)
Quarter: 2024Q4

REPORT INFORMATION
  Report Type: Spontaneous
  Country: US (occurrence: US)
  Receive Date: 20241013
  Receipt Date: 20241013
  Transmission Date: 20250114
  Serious: Yes (Hospitalization, Other)
  Sender: DR REDDYS
  Company Number: None

PATIENT
  Age: 56 Year
  Sex: Male

DRUGS (20)
  1. CLOZAPINE [Suspect]
     Active Substance: CLOZAPINE
     Indication: Antipsychotic therapy
  2. CLOZAPINE [Suspect]
     Active Substance: CLOZAPINE
  3. CLOZAPINE [Suspect]
     Active Substance: CLOZAPINE
  4. CLOZAPINE [Suspect]
     Active Substance: CLOZAPINE
  5. CLOZAPINE [Suspect]
     Active Substance: CLOZAPINE
  6. QUETIAPINE [Suspect]
     Active Substance: QUETIAPINE
     Indication: Antipsychotic therapy
  7. QUETIAPINE [Suspect]
     Active Substance: QUETIAPINE
     Dates: start: 202302
  8. OXCARBAZEPINE [Suspect]
     Active Substance: OXCARBAZEPINE
     Indication: Antipsychotic therapy
  9. OXCARBAZEPINE [Suspect]
     Active Substance: OXCARBAZEPINE
  10. OXCARBAZEPINE [Suspect]
     Active Substance: OXCARBAZEPINE
     Dosage: 1500 MG/DAY TO 1200 MG/DAY
  11. PALIPERIDONE [Suspect]
     Active Substance: PALIPERIDONE
     Indication: Antipsychotic therapy
  12. PALIPERIDONE [Suspect]
     Active Substance: PALIPERIDONE
     Dosage: 117 MG IM EVERY 28 DAYS
     Route: 030
  13. PALIPERIDONE [Suspect]
     Active Substance: PALIPERIDONE
     Dosage: 234 MG IM EVERY 28 DAYS
     Route: 030
  14. FLUVOXAMINE [Suspect]
     Active Substance: FLUVOXAMINE
     Indication: Antipsychotic therapy
     Dosage: 200 MG/DAY
  15. HYDROXYZINE [Concomitant]
     Active Substance: HYDROXYZINE HYDROCHLORIDE
     Indication: Product used for unknown indication
  16. LORAZEPAM [Concomitant]
     Active Substance: LORAZEPAM
     Indication: Antipsychotic therapy
  17. MAGNESIUM HYDROXIDE [Concomitant]
     Active Substance: MAGNESIUM HYDROXIDE
     Indication: Product used for unknown indication
  18. SENNA [Concomitant]
     Active Substance: SENNA LEAF\SENNOSIDES\SENNOSIDES A AND B
     Indication: Product used for unknown indication
  19. GLYCOPYRROLATE [Concomitant]
     Active Substance: GLYCOPYRROLATE
     Indication: Antipsychotic therapy
     Dosage: (3 MG/DAY
  20. BENZTROPINE [Concomitant]
     Active Substance: BENZTROPINE
     Indication: Antipsychotic therapy
     Dosage: (4 MG/DAY).

REACTIONS (11)
  - Suicide attempt [Unknown]
  - Delusion [Unknown]
  - Depression [Unknown]
  - Anxiety [Unknown]
  - Constipation [Unknown]
  - Sedation [Unknown]
  - Drooling [Unknown]
  - Treatment noncompliance [Unknown]
  - Drug interaction [Unknown]
  - Therapeutic response decreased [Unknown]
  - Drug ineffective [Unknown]

NARRATIVE: CASE EVENT DATE: 20221101
